FAERS Safety Report 6750139-0 (Version None)
Quarter: 2010Q2

REPORT INFORMATION
  Report Type: 
  Country: None (occurrence: None)
  Receive Date: 20100601
  Receipt Date: 20100521
  Transmission Date: 20101027
  Serious: Yes (Hospitalization, Other)
  Sender: FDA-Public Use
  Company Number: BE-ELI_LILLY_AND_COMPANY-BE201001003092

PATIENT
  Sex: Female
  Weight: 67.5 kg

DRUGS (8)
  1. BYETTA [Suspect]
     Indication: TYPE 2 DIABETES MELLITUS
     Dosage: 5 UG, 2/D
     Route: 058
     Dates: start: 20080428, end: 20080707
  2. SOTALEX [Concomitant]
     Indication: ATRIAL FIBRILLATION
     Dosage: UNK, 2/D
     Route: 048
     Dates: start: 20040101
  3. GLUCOPHAGE [Concomitant]
     Indication: DIABETES MELLITUS
     Dosage: 500 MG, 3/D
     Route: 048
     Dates: start: 19850101
  4. GLURENOR [Concomitant]
     Indication: DIABETES MELLITUS
     Dosage: UNK, 2/D
     Route: 048
     Dates: start: 19950101
  5. CARDIOASPIRINE [Concomitant]
     Indication: ARTERIOSCLEROSIS
     Dosage: 100 MG, DAILY (1/D)
     Dates: start: 20040101
  6. COVERSYL [Concomitant]
     Indication: HYPERTENSION
     Dosage: 5 MG, DAILY (1/D)
     Route: 048
     Dates: start: 20040101
  7. SINTROM [Concomitant]
     Route: 048
     Dates: start: 19910101
  8. ZOCOR [Concomitant]

REACTIONS (5)
  - CHOLECYSTITIS ACUTE [None]
  - CHOLELITHIASIS [None]
  - NAUSEA [None]
  - SEPSIS [None]
  - WEIGHT DECREASED [None]
